FAERS Safety Report 9816873 (Version 1)
Quarter: 2014Q1

REPORT INFORMATION
  Report Type: Spontaneous
  Country: US (occurrence: US)
  Receive Date: 20140114
  Receipt Date: 20140114
  Transmission Date: 20141002
  Serious: No
  Sender: FDA-Public Use
  Company Number: US-ENDO PHARMACEUTICALS INC.-ENDC20130036

PATIENT
  Age: 62 Year
  Sex: Female

DRUGS (2)
  1. ENDOCET 5MG/325MG [Suspect]
     Indication: PAIN
     Dosage: 15/975MG
     Route: 048
     Dates: start: 20130918
  2. ENDOCET 7.5MG/325MG [Concomitant]
     Indication: PAIN
     Dosage: 30/1300MG
     Route: 048
     Dates: start: 2010, end: 20130918

REACTIONS (2)
  - Feeling jittery [Unknown]
  - Drug effect decreased [Not Recovered/Not Resolved]
